FAERS Safety Report 5158947-7 (Version None)
Quarter: 2006Q4

REPORT INFORMATION
  Report Type: 
  Country: None (occurrence: None)
  Receive Date: 20061128
  Receipt Date: 20061116
  Transmission Date: 20070319
  Serious: Yes (Other)
  Sender: FDA-Public Use
  Company Number: US-BRISTOL-MYERS SQUIBB COMPANY-13581087

PATIENT
  Age: 48 Year
  Sex: Male
  Weight: 61 kg

DRUGS (7)
  1. SUSTIVA [Suspect]
     Indication: HIV INFECTION
     Route: 048
  2. DIDANOSINE [Suspect]
     Indication: HIV INFECTION
     Dosage: THERAPY DISCONTINUED SOMETIME BETWEEN MAY-2006 AND JUL-2006.
     Dates: end: 20060101
  3. COUMADIN [Concomitant]
  4. POTASSIUM ACETATE [Concomitant]
  5. PANCREASE [Concomitant]
  6. SPIRONOLACTONE [Concomitant]
  7. NEXIUM [Concomitant]

REACTIONS (1)
  - PANCREATIC INSUFFICIENCY [None]
